FAERS Safety Report 24560798 (Version 1)
Quarter: 2024Q4

REPORT INFORMATION
  Report Type: Report from Study
  Country: MX (occurrence: MX)
  Receive Date: 20241029
  Receipt Date: 20241029
  Transmission Date: 20250115
  Serious: Yes (Hospitalization)
  Sender: NOVARTIS
  Company Number: MX-SANDOZ-SDZ2024MX089251

PATIENT
  Age: 8 Year
  Sex: Female
  Weight: 20 kg

DRUGS (10)
  1. OMNITROPE [Suspect]
     Active Substance: SOMATROPIN
     Indication: Growth disorder
     Dosage: 2.1 MG, QD
     Route: 058
     Dates: start: 2022
  2. OMNITROPE [Suspect]
     Active Substance: SOMATROPIN
     Indication: Premature baby
  3. CARBAMAZEPINE [Suspect]
     Active Substance: CARBAMAZEPINE
     Indication: Growth disorder
     Dosage: 7 ML, Q12H
     Route: 065
  4. CARBAMAZEPINE [Suspect]
     Active Substance: CARBAMAZEPINE
     Indication: Premature baby
  5. LEVETIRACETAM [Suspect]
     Active Substance: LEVETIRACETAM
     Indication: Growth disorder
     Dosage: 4 ML, Q12H
     Route: 065
  6. LEVETIRACETAM [Suspect]
     Active Substance: LEVETIRACETAM
     Indication: Premature baby
  7. OMEGA 3 [Suspect]
     Active Substance: CAPSAICIN
     Indication: Growth disorder
     Dosage: ONE TABLET,  QD
     Route: 065
  8. OMEGA 3 [Suspect]
     Active Substance: CAPSAICIN
     Indication: Premature baby
  9. BUDESONIDE\FORMOTEROL FUMARATE DIHYDRATE [Concomitant]
     Active Substance: BUDESONIDE\FORMOTEROL FUMARATE DIHYDRATE
     Indication: Growth disorder
     Dosage: 80 MG
     Route: 065
  10. BUDESONIDE\FORMOTEROL FUMARATE DIHYDRATE [Concomitant]
     Active Substance: BUDESONIDE\FORMOTEROL FUMARATE DIHYDRATE
     Indication: Premature baby

REACTIONS (1)
  - Tracheostomy malfunction [Unknown]

NARRATIVE: CASE EVENT DATE: 20240913
